FAERS Safety Report 24452043 (Version 1)
Quarter: 2024Q4

REPORT INFORMATION
  Report Type: Spontaneous
  Country: US (occurrence: US)
  Receive Date: 20241017
  Receipt Date: 20241017
  Transmission Date: 20250115
  Serious: No
  Sender: SUNOVION
  Company Number: US-UROVANT SCIENCES GMBH-202401-URV-000024

PATIENT
  Sex: Female

DRUGS (2)
  1. GEMTESA [Suspect]
     Active Substance: VIBEGRON
     Indication: Hypertonic bladder
     Dosage: 75 MG, QD
     Route: 048
     Dates: start: 2023
  2. GEMTESA [Suspect]
     Active Substance: VIBEGRON
     Dosage: 0.5 TAB, QD
     Route: 048
     Dates: start: 20240108

REACTIONS (5)
  - Constipation [Not Recovered/Not Resolved]
  - Headache [Recovering/Resolving]
  - Wrong technique in product usage process [Unknown]
  - Underdose [Unknown]
  - Therapeutic product effect incomplete [Unknown]
